FAERS Safety Report 15515356 (Version 2)
Quarter: 2018Q4

REPORT INFORMATION
  Report Type: Spontaneous
  Country: US (occurrence: US)
  Receive Date: 20181017
  Receipt Date: 20181115
  Transmission Date: 20190205
  Serious: Yes (Life-Threatening, Disabling, Other)
  Sender: FDA-Public Use
  Company Number: US-ASTRAZENECA-2018SF19869

PATIENT
  Age: 22649 Day
  Sex: Male
  Weight: 87.5 kg

DRUGS (4)
  1. METFORMIN [Concomitant]
     Active Substance: METFORMIN HYDROCHLORIDE
     Indication: DIABETES MELLITUS
     Dosage: 500 MG
     Dates: start: 19990911
  2. BYDUREON [Suspect]
     Active Substance: EXENATIDE
     Indication: DIABETES MELLITUS
     Dosage: ONCE A DAY FOR THREE DAYS
     Route: 058
     Dates: start: 20180829
  3. INSULIN [Concomitant]
     Active Substance: INSULIN NOS
     Indication: DIABETES MELLITUS
     Route: 058
  4. BYDUREON [Suspect]
     Active Substance: EXENATIDE
     Indication: DIABETES MELLITUS
     Route: 058
     Dates: end: 20180901

REACTIONS (9)
  - Malaise [Unknown]
  - Nausea [Unknown]
  - Dizziness [Not Recovered/Not Resolved]
  - Abdominal pain upper [Unknown]
  - Product dispensing error [Unknown]
  - Diabetic coma [Unknown]
  - Ulcer [Unknown]
  - Blood glucose fluctuation [Not Recovered/Not Resolved]
  - Impaired work ability [Unknown]

NARRATIVE: CASE EVENT DATE: 20180829
